FAERS Safety Report 23596581 (Version 2)
Quarter: 2024Q2

REPORT INFORMATION
  Report Type: Spontaneous
  Country: PT (occurrence: PT)
  Receive Date: 20240305
  Receipt Date: 20240419
  Transmission Date: 20240716
  Serious: Yes (Other)
  Sender: FDA-Public Use
  Company Number: None

PATIENT
  Age: 80 Year
  Sex: Male
  Weight: 85 kg

DRUGS (7)
  1. XANAX [Suspect]
     Active Substance: ALPRAZOLAM
     Indication: Anxiety
     Dosage: 0.25 MILLIGRAM, QD (1/2 TABLET AT BEDTIME)
     Route: 048
     Dates: start: 20240213, end: 20240219
  2. INDERAL [Concomitant]
     Active Substance: PROPRANOLOL HYDROCHLORIDE
     Indication: Product used for unknown indication
     Dosage: 10 MILLIGRAM, QD (10 MG PER DAY)
     Route: 065
  3. INDERAL [Concomitant]
     Active Substance: PROPRANOLOL HYDROCHLORIDE
     Indication: Product used for unknown indication
     Dosage: 20 MILLIGRAM, QD (1/2 TABLET PER DAY)
     Route: 065
  4. ZANICOR [Concomitant]
     Indication: Product used for unknown indication
     Dosage: 20 MILLIGRAM, QD (20 MG PER DAY)
     Route: 065
  5. TROMALYT [Concomitant]
     Active Substance: ASPIRIN
     Indication: Product used for unknown indication
     Dosage: 150 MILLIGRAM, QD (150 MG PER DAY)
     Route: 065
  6. NEXIUM [Concomitant]
     Active Substance: ESOMEPRAZOLE MAGNESIUM
     Indication: Product used for unknown indication
     Dosage: 20 MILLIGRAM, QD (20 MG PER DAY)
     Route: 065
  7. DIOVAN [Concomitant]
     Active Substance: VALSARTAN
     Indication: Product used for unknown indication
     Dosage: 160 MILLIGRAM, QD (160 MG PER DAY)
     Route: 065

REACTIONS (4)
  - Hypersensitivity [Recovered/Resolved]
  - Laryngeal oedema [Recovered/Resolved]
  - Dry mouth [Recovered/Resolved]
  - Product quality issue [Recovered/Resolved]

NARRATIVE: CASE EVENT DATE: 20240213
